FAERS Safety Report 4646671-6 (Version None)
Quarter: 2005Q2

REPORT INFORMATION
  Report Type: 
  Country: None (occurrence: None)
  Receive Date: 20050425
  Receipt Date: 20050414
  Transmission Date: 20051028
  Serious: Yes (Hospitalization)
  Sender: FDA-Public Use
  Company Number: 05P-163-0297349-00

PATIENT
  Age: 66 Year
  Sex: Female
  Weight: 103 kg

DRUGS (11)
  1. HUMIRA [Suspect]
     Indication: RHEUMATOID ARTHRITIS
     Dosage: 40 MG, 2 IN 1 WK, SUBCUTANEOUS
     Route: 058
     Dates: start: 20041101, end: 20041201
  2. POTASSIUM CHLORIDE [Concomitant]
  3. FUROSEMIDE [Concomitant]
  4. LEVOTHYROXINE SODIUM [Concomitant]
  5. METOPROLOL [Concomitant]
  6. LEFLUNOMIDE [Concomitant]
  7. PREDNISONE [Concomitant]
  8. DIGOXIN [Concomitant]
  9. WARFARIN SODIUM [Concomitant]
  10. OMEPRAZOLE [Concomitant]
  11. DILTIAZEM HYDROCHLORIDE [Concomitant]

REACTIONS (5)
  - CARDIAC FIBRILLATION [None]
  - CONDITION AGGRAVATED [None]
  - ONYCHOMYCOSIS [None]
  - RASH [None]
  - RHEUMATOID ARTHRITIS [None]
